FAERS Safety Report 6758975-1 (Version None)
Quarter: 2010Q2

REPORT INFORMATION
  Report Type: 
  Country: None (occurrence: None)
  Receive Date: 20100603
  Receipt Date: 20100526
  Transmission Date: 20101027
  Serious: Yes (Life-Threatening)
  Sender: FDA-Public Use
  Company Number: 010299

PATIENT
  Sex: Female
  Weight: 64 kg

DRUGS (4)
  1. CERTOLIZUMAB PEGOL (CERTOLIZUMAB PEGOL) [Suspect]
     Indication: RHEUMATOID ARTHRITIS
     Dosage: (200 MG 1X/2 WEEKS SUBCUTANEOUS)
     Route: 058
     Dates: start: 20091011, end: 20100408
  2. URBASON /00049601/ [Concomitant]
  3. METHOTREXATE [Concomitant]
  4. BISOPROLOL [Concomitant]

REACTIONS (1)
  - PULMONARY EMBOLISM [None]
